FAERS Safety Report 16324721 (Version 1)
Quarter: 2019Q2

REPORT INFORMATION
  Report Type: Spontaneous
  Country: US (occurrence: US)
  Receive Date: 20190517
  Receipt Date: 20190517
  Transmission Date: 20190711
  Serious: No
  Sender: FDA-Public Use
  Company Number: US-ENDO PHARMACEUTICALS INC-2019-103628

PATIENT
  Sex: Female

DRUGS (3)
  1. VIGABATRIN. [Suspect]
     Active Substance: VIGABATRIN
     Indication: EPILEPSY
     Dosage: UNK UNK, UNKNOWN
     Route: 065
  2. EPIDIOLEX [Concomitant]
     Active Substance: CANNABIDIOL
     Indication: EPILEPSY
     Dosage: 1,5 ML PO AM AND 2 ML PO PM
     Route: 048
  3. SABRIL [Concomitant]
     Active Substance: VIGABATRIN
     Indication: EPILEPSY
     Dosage: 500MG PP, 750 PO BID
     Route: 048

REACTIONS (1)
  - Drug ineffective [Unknown]
